FAERS Safety Report 5990186-X (Version None)
Quarter: 2008Q4

REPORT INFORMATION
  Report Type: 
  Country: None (occurrence: None)
  Receive Date: 20081211
  Receipt Date: 20081201
  Transmission Date: 20090506
  Serious: Yes (Hospitalization)
  Sender: FDA-Public Use
  Company Number: US-SOLVAY-00208005465

PATIENT
  Age: 657 Month
  Sex: Male
  Weight: 127 kg

DRUGS (12)
  1. DILTIAZEM [Concomitant]
     Indication: HYPERTENSION
     Dosage: DAILY DOSE: 540 MILLIGRAM(S)
     Route: 048
     Dates: end: 20080801
  2. DILTIAZEM [Concomitant]
     Dosage: DAILY DOSE: 180 MILLIGRAM(S)
     Route: 048
     Dates: start: 20080801, end: 20080101
  3. DILTIAZEM [Concomitant]
     Dosage: DAILY DOSE: 360 MILLIGRAM(S)
     Route: 048
     Dates: start: 20080101
  4. ANDROGEL [Suspect]
     Indication: TESTICULAR PAIN
     Dosage: DAILY DOSE: 2.5 GRAM(S)
     Route: 062
     Dates: start: 20080201, end: 20080801
  5. ANDROGEL [Suspect]
     Dosage: DAILY DOSE: 2.5 GRAM(S)
     Route: 062
     Dates: start: 20080801, end: 20080801
  6. COREG [Concomitant]
     Indication: HYPERTENSION
     Dosage: DAILY DOSE:  UNKNOWN
     Route: 048
  7. MICARDIS [Concomitant]
     Indication: HYPERTENSION
     Dosage: DAILY DOSE:  UNKNOWN
     Route: 048
  8. PRILOSEC [Concomitant]
     Indication: GASTROOESOPHAGEAL REFLUX DISEASE
     Dosage: DAILY DOSE:  UNKNOWN
     Route: 048
  9. TRICOR [Concomitant]
     Indication: HIGH DENSITY LIPOPROTEIN DECREASED
     Dosage: DAILY DOSE:  UNKNOWN
     Route: 048
  10. CLARITIN [Concomitant]
     Indication: SEASONAL ALLERGY
     Dosage: DAILY DOSE:  UNKNOWN
     Route: 048
  11. CATAPRES [Concomitant]
     Indication: DRUG USE FOR UNKNOWN INDICATION
     Dosage: DAILY DOSE:  UNKNOWN
     Route: 065
  12. THIAZIDE MEDICATION [Concomitant]
     Indication: DRUG USE FOR UNKNOWN INDICATION
     Dosage: DAILY DOSE:  UNKNOWN
     Route: 065

REACTIONS (2)
  - INTESTINAL OBSTRUCTION [None]
  - JOINT SWELLING [None]
